FAERS Safety Report 20821268 (Version 1)
Quarter: 2022Q2

REPORT INFORMATION
  Report Type: Spontaneous
  Country: US (occurrence: US)
  Receive Date: 20220512
  Receipt Date: 20220512
  Transmission Date: 20220721
  Serious: No
  Sender: FDA-Public Use
  Company Number: US-PFIZER INC-202200676565

PATIENT
  Age: 65 Year
  Sex: Female
  Weight: 61.69 kg

DRUGS (2)
  1. PAXLOVID [Suspect]
     Active Substance: NIRMATRELVIR\RITONAVIR
     Indication: COVID-19 treatment
     Dosage: UNK UNK, 2X/DAY (3RD DOSE)
     Dates: start: 20220504
  2. PLAQUENIL [Concomitant]
     Active Substance: HYDROXYCHLOROQUINE SULFATE
     Indication: Sjogren^s syndrome
     Dosage: UNK

REACTIONS (2)
  - Epistaxis [Unknown]
  - Vision blurred [Unknown]

NARRATIVE: CASE EVENT DATE: 20220501
